FAERS Safety Report 12255454 (Version 2)
Quarter: 2016Q2

REPORT INFORMATION
  Report Type: Spontaneous
  Country: FR (occurrence: FR)
  Receive Date: 20160412
  Receipt Date: 20160419
  Transmission Date: 20160815
  Serious: Yes (Hospitalization)
  Sender: FDA-Public Use
  Company Number: FR-ROCHE-1739682

PATIENT
  Age: 88 Year
  Sex: Female

DRUGS (5)
  1. ATROVENT [Concomitant]
     Active Substance: IPRATROPIUM BROMIDE
     Dosage: 3 PUFFS A DAY
     Route: 055
     Dates: start: 20160307
  2. ROCEPHINE [Suspect]
     Active Substance: CEFTRIAXONE SODIUM
     Indication: ACUTE RESPIRATORY FAILURE
     Route: 042
     Dates: start: 20160307, end: 20160315
  3. BRICANYL [Concomitant]
     Active Substance: TERBUTALINE SULFATE
     Dosage: 3 PUFFS A DAY
     Route: 055
     Dates: start: 20160307
  4. CORDARONE [Concomitant]
     Active Substance: AMIODARONE HYDROCHLORIDE
     Route: 065
     Dates: start: 20160307
  5. ZECLAR [Suspect]
     Active Substance: CLARITHROMYCIN
     Indication: ACUTE RESPIRATORY FAILURE
     Route: 048
     Dates: start: 20160307, end: 20160315

REACTIONS (1)
  - Pemphigus [Not Recovered/Not Resolved]

NARRATIVE: CASE EVENT DATE: 20160310
